FAERS Safety Report 8095400-5 (Version None)
Quarter: 2012Q1

REPORT INFORMATION
  Report Type: 
  Country: None (occurrence: None)
  Receive Date: 20120131
  Receipt Date: 20120119
  Transmission Date: 20120608
  Serious: Yes (Hospitalization, Other)
  Sender: FDA-Public Use
  Company Number: FR-BRISTOL-MYERS SQUIBB COMPANY-16359572

PATIENT
  Age: 88 Year
  Sex: Male

DRUGS (9)
  1. RAMIPRIL [Concomitant]
  2. AMLODIPINE BESYLATE [Concomitant]
  3. RULID [Concomitant]
  4. COUMADIN [Suspect]
     Indication: ARRHYTHMIA SUPRAVENTRICULAR
     Dosage: ALSO TAKEN AS CONMED
     Route: 048
     Dates: start: 20110301, end: 20111227
  5. MODOPAR [Concomitant]
  6. ACETAMINOPHEN AND TRAMADOL HCL [Concomitant]
     Dates: start: 20111121
  7. CIPROFLOXACIN [Suspect]
     Indication: LUNG INFECTION
     Dosage: TABS ORALLY STOPPED ON 12NOV11, RE-INTRODUCED FROM 08DEC11 TO 12DEC11
     Route: 048
     Dates: start: 20111103, end: 20111212
  8. VOLTAREN [Suspect]
     Route: 003
     Dates: start: 20111226
  9. TRANSIPEG [Concomitant]

REACTIONS (4)
  - HAEMOGLOBIN DECREASED [None]
  - EPISTAXIS [None]
  - INTERNATIONAL NORMALISED RATIO INCREASED [None]
  - LUNG INFECTION [None]
